FAERS Safety Report 20789405 (Version 1)
Quarter: 2022Q2

REPORT INFORMATION
  Report Type: Spontaneous
  Country: US (occurrence: None)
  Receive Date: 20220504
  Receipt Date: 20220504
  Transmission Date: 20220721
  Serious: Yes (unspecified)
  Sender: FDA-Public Use
  Company Number: None

PATIENT
  Age: 63 Year
  Sex: Male
  Weight: 144 kg

DRUGS (14)
  1. TRELEGY ELLIPTA [Suspect]
     Active Substance: FLUTICASONE FUROATE\UMECLIDINIUM BROMIDE\VILANTEROL TRIFENATATE
     Indication: Chronic obstructive pulmonary disease
     Dosage: OTHER QUANTITY : 1 PUFF(S);?FREQUENCY : DAILY;?
     Route: 055
     Dates: start: 20220411, end: 20220417
  2. METFORMIN [Concomitant]
  3. FENOFIBRATE [Concomitant]
     Active Substance: FENOFIBRATE
  4. lcosapant [Concomitant]
  5. ESCITALOPRAM [Concomitant]
     Active Substance: ESCITALOPRAM OXALATE
  6. TRULICITY [Concomitant]
     Active Substance: DULAGLUTIDE
  7. GLIPIZIDE [Concomitant]
     Active Substance: GLIPIZIDE
  8. ATORVASTATIN [Concomitant]
     Active Substance: ATORVASTATIN
  9. DEVICE [Concomitant]
     Active Substance: DEVICE
  10. VITAMIN D [Concomitant]
     Active Substance: VITAMIN D NOS
  11. VITAMIN B [Concomitant]
     Active Substance: VITAMIN B
  12. COENZYME Q10 [Concomitant]
     Active Substance: DIETARY SUPPLEMENT\UBIDECARENONE
  13. PRILOSEC [Concomitant]
     Active Substance: OMEPRAZOLE MAGNESIUM
  14. ZYRTEC [Concomitant]
     Active Substance: CETIRIZINE HYDROCHLORIDE

REACTIONS (1)
  - Urinary tract infection [None]

NARRATIVE: CASE EVENT DATE: 20220417
